FAERS Safety Report 12706312 (Version 1)
Quarter: 2016Q3

REPORT INFORMATION
  Report Type: Spontaneous
  Country: US (occurrence: US)
  Receive Date: 20160901
  Receipt Date: 20160901
  Transmission Date: 20161109
  Serious: No
  Sender: FDA-Public Use
  Company Number: US-DRREDDYS-DRL/USA/16/0079190

PATIENT
  Age: 59 Year
  Sex: Female

DRUGS (1)
  1. FONDAPARINUX SODIUM 5 MG/0.4 ML [Suspect]
     Active Substance: FONDAPARINUX SODIUM
     Indication: PRODUCT USED FOR UNKNOWN INDICATION
     Dosage: 5 MG/0.4 ML

REACTIONS (2)
  - Product substitution issue [None]
  - Application site pain [Unknown]
